FAERS Safety Report 25899735 (Version 2)
Quarter: 2025Q4

REPORT INFORMATION
  Report Type: Spontaneous
  Country: US (occurrence: US)
  Receive Date: 20251009
  Receipt Date: 20251016
  Transmission Date: 20260117
  Serious: Yes (Hospitalization, Other)
  Sender: UROGEN PHARMA
  Company Number: US-UROGEN PHARMA LTD.-2025-UGN-000151

PATIENT

DRUGS (5)
  1. JELMYTO [Suspect]
     Active Substance: MITOMYCIN
     Indication: Product used for unknown indication
     Dosage: 40 MILLIGRAM, (INSTILLATION)
     Route: 065
     Dates: start: 20250728, end: 20250728
  2. JELMYTO [Suspect]
     Active Substance: MITOMYCIN
     Dosage: 40 MILLIGRAM, (INSTILLATION)
     Route: 065
     Dates: start: 20250804, end: 20250804
  3. JELMYTO [Suspect]
     Active Substance: MITOMYCIN
     Dosage: 40 MILLIGRAM, (INSTILLATION)
     Route: 065
     Dates: start: 2025, end: 2025
  4. JELMYTO [Suspect]
     Active Substance: MITOMYCIN
     Dosage: 40 MILLIGRAM, (INSTILLATION)
     Route: 065
     Dates: start: 20250923, end: 20250923
  5. JELMYTO [Suspect]
     Active Substance: MITOMYCIN
     Dosage: 40 MILLIGRAM, (INSTILLATION)
     Route: 065
     Dates: start: 20251006, end: 20251006

REACTIONS (3)
  - Pyelonephritis acute [Recovered/Resolved]
  - Nephrostomy tube removal [Unknown]
  - Nephrostomy tube removal [Unknown]

NARRATIVE: CASE EVENT DATE: 20250101
